FAERS Safety Report 9735666 (Version 1)
Quarter: 2013Q4

REPORT INFORMATION
  Report Type: Spontaneous
  Country: BR (occurrence: BR)
  Receive Date: 20131206
  Receipt Date: 20131206
  Transmission Date: 20140711
  Serious: Yes (Other)
  Sender: FDA-Public Use
  Company Number: BR-AMGEN-BRASP2013085846

PATIENT
  Age: 57 Year
  Sex: Female
  Weight: 70 kg

DRUGS (5)
  1. ENBREL [Suspect]
     Indication: PSORIATIC ARTHROPATHY
     Dosage: 50 MG, ONCE WEEKLY
     Route: 058
     Dates: start: 201306, end: 2013
  2. LOTAR                              /02225901/ [Concomitant]
     Indication: BLOOD PRESSURE ABNORMAL
     Dosage: UNK
  3. MODURETIC [Concomitant]
     Indication: DIURETIC THERAPY
     Dosage: UNK
     Dates: start: 201310
  4. TRAMADOL [Concomitant]
     Dosage: UNK
     Dates: start: 2012
  5. PARACETAMOL [Concomitant]
     Dosage: UNK
     Dates: start: 2012

REACTIONS (2)
  - Chondropathy [Unknown]
  - Drug ineffective [Unknown]
